FAERS Safety Report 7190347-0 (Version None)
Quarter: 2010Q4

REPORT INFORMATION
  Report Type: 
  Country: None (occurrence: None)
  Receive Date: 20101223
  Receipt Date: 20100406
  Transmission Date: 20110411
  Serious: No
  Sender: FDA-Public Use
  Company Number: -MYLANLABS-2010S1006021

PATIENT
  Age: 63 Year
  Sex: Female

DRUGS (12)
  1. MILNACIPRAN HYDROCHLORIDE [Suspect]
     Indication: FIBROMYALGIA
     Route: 048
     Dates: start: 20100316, end: 20100316
  2. MILNACIPRAN HYDROCHLORIDE [Suspect]
     Indication: PAIN
     Route: 048
     Dates: start: 20100316, end: 20100316
  3. MILNACIPRAN HYDROCHLORIDE [Suspect]
     Route: 048
     Dates: start: 20100317, end: 20100318
  4. MILNACIPRAN HYDROCHLORIDE [Suspect]
     Route: 048
     Dates: start: 20100317, end: 20100318
  5. MILNACIPRAN HYDROCHLORIDE [Suspect]
     Route: 048
     Dates: start: 20100319, end: 20100322
  6. MILNACIPRAN HYDROCHLORIDE [Suspect]
     Route: 048
     Dates: start: 20100319, end: 20100322
  7. MILNACIPRAN HYDROCHLORIDE [Suspect]
     Route: 048
     Dates: start: 20100323
  8. MILNACIPRAN HYDROCHLORIDE [Suspect]
     Route: 048
     Dates: start: 20100323
  9. TRAMADOL HYDROCHLORIDE [Suspect]
     Indication: PAIN
     Route: 048
  10. NEURONTIN [Suspect]
     Indication: PAIN
     Route: 048
  11. XANAX [Concomitant]
     Route: 048
  12. AMBIEN [Concomitant]
     Indication: INSOMNIA
     Route: 048

REACTIONS (7)
  - AGITATION [None]
  - BURNING SENSATION [None]
  - DIARRHOEA [None]
  - DYSKINESIA [None]
  - FATIGUE [None]
  - HYPERHIDROSIS [None]
  - INSOMNIA [None]
